FAERS Safety Report 11125673 (Version 2)
Quarter: 2015Q3

REPORT INFORMATION
  Report Type: Report from Study
  Country: AU (occurrence: AU)
  Receive Date: 20150520
  Receipt Date: 20150723
  Transmission Date: 20151125
  Serious: Yes (Hospitalization, Other)
  Sender: FDA-Public Use
  Company Number: PHHY2015AU052894

PATIENT
  Age: 61 Year
  Sex: Male

DRUGS (1)
  1. CLOZARIL [Suspect]
     Active Substance: CLOZAPINE
     Indication: SCHIZOPHRENIA
     Dosage: 300 MG
     Route: 048
     Dates: start: 20120719, end: 20150429

REACTIONS (14)
  - Aspartate aminotransferase increased [Recovered/Resolved]
  - Blood lactate dehydrogenase increased [Recovered/Resolved]
  - Alanine aminotransferase increased [Recovered/Resolved]
  - Blood lactate dehydrogenase increased [Recovered/Resolved]
  - Mental impairment [Recovering/Resolving]
  - Paranoia [Unknown]
  - Gamma-glutamyltransferase increased [Recovered/Resolved]
  - Red blood cell count decreased [Unknown]
  - Blood alkaline phosphatase decreased [Unknown]
  - Antipsychotic drug level below therapeutic [Not Recovered/Not Resolved]
  - Blood urea increased [Recovered/Resolved]
  - Anion gap decreased [Recovered/Resolved]
  - Blood alkaline phosphatase decreased [Recovered/Resolved]
  - Blood urea nitrogen/creatinine ratio increased [Recovered/Resolved]

NARRATIVE: CASE EVENT DATE: 20120726
